FAERS Safety Report 26075586 (Version 1)
Quarter: 2025Q4

REPORT INFORMATION
  Report Type: Spontaneous
  Country: RU (occurrence: RU)
  Receive Date: 20251121
  Receipt Date: 20251121
  Transmission Date: 20260117
  Serious: Yes (Other)
  Sender: JOHNSON AND JOHNSON
  Company Number: RU-JNJFOC-20251154939

PATIENT
  Age: 60 Year
  Sex: Male
  Weight: 56 kg

DRUGS (16)
  1. SIRTURO [Suspect]
     Active Substance: BEDAQUILINE FUMARATE
     Indication: Pulmonary tuberculosis
     Route: 048
     Dates: start: 20250409, end: 20250922
  2. SIRTURO [Suspect]
     Active Substance: BEDAQUILINE FUMARATE
     Route: 048
     Dates: start: 20250325
  3. LEVOFLOXACIN [Suspect]
     Active Substance: LEVOFLOXACIN
     Indication: Pulmonary tuberculosis
     Route: 048
     Dates: start: 20250326, end: 20251029
  4. LEVOFLOXACIN [Suspect]
     Active Substance: LEVOFLOXACIN
     Route: 048
     Dates: start: 20251031
  5. LINEZOLID [Suspect]
     Active Substance: LINEZOLID
     Indication: Pulmonary tuberculosis
     Route: 048
     Dates: start: 20250326, end: 20250908
  6. LINEZOLID [Suspect]
     Active Substance: LINEZOLID
     Route: 048
     Dates: start: 20250920, end: 20251029
  7. LINEZOLID [Suspect]
     Active Substance: LINEZOLID
     Route: 048
     Dates: start: 20251031
  8. DELAMANID [Suspect]
     Active Substance: DELAMANID
     Indication: Pulmonary tuberculosis
     Route: 048
     Dates: start: 20250610
  9. DELAMANID [Suspect]
     Active Substance: DELAMANID
     Route: 048
     Dates: start: 20251031
  10. TERIZIDONE [Concomitant]
     Active Substance: TERIZIDONE
     Indication: Pulmonary tuberculosis
     Dates: start: 20250325
  11. CAPREOMYCIN [Concomitant]
     Active Substance: CAPREOMYCIN
     Indication: Pulmonary tuberculosis
     Dates: start: 20250325
  12. PYRAZINAMIDE [Concomitant]
     Active Substance: PYRAZINAMIDE
     Indication: Pulmonary tuberculosis
     Dates: start: 20250930
  13. PYRAZINAMIDE [Concomitant]
     Active Substance: PYRAZINAMIDE
     Dates: start: 20251031
  14. CYCLOSERINE [Concomitant]
     Active Substance: CYCLOSERINE
     Indication: Pulmonary tuberculosis
     Dates: start: 20251031
  15. AMOXICILLIN [Concomitant]
     Active Substance: AMOXICILLIN
     Indication: Pulmonary tuberculosis
     Dates: start: 20251031
  16. MEROPENEM [Concomitant]
     Active Substance: MEROPENEM
     Indication: Pulmonary tuberculosis
     Dates: start: 20251031

REACTIONS (2)
  - Polyneuropathy [Not Recovered/Not Resolved]
  - Arthralgia [Not Recovered/Not Resolved]

NARRATIVE: CASE EVENT DATE: 20250808
